FAERS Safety Report 6213600-3 (Version None)
Quarter: 2009Q2

REPORT INFORMATION
  Report Type: 
  Country: None (occurrence: None)
  Receive Date: 20090601
  Receipt Date: 20090521
  Transmission Date: 20091009
  Serious: Yes (Hospitalization)
  Sender: FDA-Public Use
  Company Number: WAES 0904USA02095

PATIENT
  Age: 69 Year
  Sex: Male

DRUGS (23)
  1. CAP VORINOSTAT [Suspect]
     Indication: MYELOMA RECURRENCE
     Dosage: 400 MG/DAILY; 400 MG/DAILY
     Route: 048
     Dates: start: 20090310, end: 20090316
  2. CAP VORINOSTAT [Suspect]
     Indication: MYELOMA RECURRENCE
     Dosage: 400 MG/DAILY; 400 MG/DAILY
     Route: 048
     Dates: start: 20090330, end: 20090412
  3. BORTEZOMIB [Suspect]
     Indication: MULTIPLE MYELOMA
     Dosage: 2.25 MG/DAILY; 2.25 MG/DAILY; 1.67 MG/DAILY; 1.67 MG/DAILY; 1.67 MG/DAILY; 1.67 MG/DAILY
     Route: 042
     Dates: start: 20090310, end: 20090310
  4. BORTEZOMIB [Suspect]
     Indication: MULTIPLE MYELOMA
     Dosage: 2.25 MG/DAILY; 2.25 MG/DAILY; 1.67 MG/DAILY; 1.67 MG/DAILY; 1.67 MG/DAILY; 1.67 MG/DAILY
     Route: 042
     Dates: start: 20090313, end: 20090313
  5. BORTEZOMIB [Suspect]
     Indication: MULTIPLE MYELOMA
     Dosage: 2.25 MG/DAILY; 2.25 MG/DAILY; 1.67 MG/DAILY; 1.67 MG/DAILY; 1.67 MG/DAILY; 1.67 MG/DAILY
     Route: 042
     Dates: start: 20090330, end: 20090330
  6. BORTEZOMIB [Suspect]
     Indication: MULTIPLE MYELOMA
     Dosage: 2.25 MG/DAILY; 2.25 MG/DAILY; 1.67 MG/DAILY; 1.67 MG/DAILY; 1.67 MG/DAILY; 1.67 MG/DAILY
     Route: 042
     Dates: start: 20090402, end: 20090402
  7. BORTEZOMIB [Suspect]
     Indication: MULTIPLE MYELOMA
     Dosage: 2.25 MG/DAILY; 2.25 MG/DAILY; 1.67 MG/DAILY; 1.67 MG/DAILY; 1.67 MG/DAILY; 1.67 MG/DAILY
     Route: 042
     Dates: start: 20090406, end: 20090406
  8. BORTEZOMIB [Suspect]
     Indication: MULTIPLE MYELOMA
     Dosage: 2.25 MG/DAILY; 2.25 MG/DAILY; 1.67 MG/DAILY; 1.67 MG/DAILY; 1.67 MG/DAILY; 1.67 MG/DAILY
     Route: 042
     Dates: start: 20090409, end: 20090409
  9. ACTONEL [Concomitant]
  10. ADALAT CC [Concomitant]
  11. CRAVIT [Concomitant]
  12. FLUITRAN [Concomitant]
  13. GASTER D [Concomitant]
  14. KYTRIL [Concomitant]
  15. LONGES [Concomitant]
  16. MAGLAX [Concomitant]
  17. MOHRUS [Concomitant]
  18. OXYCONTIN [Concomitant]
  19. PENTAZOCINE LACTATE [Concomitant]
  20. PRIMPERAN [Concomitant]
  21. SELBEX [Concomitant]
  22. SOLDEM 3A [Concomitant]
  23. ZYLORIC [Concomitant]

REACTIONS (15)
  - ALANINE AMINOTRANSFERASE INCREASED [None]
  - ANOREXIA [None]
  - BLOOD ALBUMIN DECREASED [None]
  - BONE PAIN [None]
  - CONSTIPATION [None]
  - DEHYDRATION [None]
  - FATIGUE [None]
  - INFECTION [None]
  - LEUKOPENIA [None]
  - LYMPHOPENIA [None]
  - NAUSEA [None]
  - PNEUMONIA [None]
  - THROMBOCYTOPENIA [None]
  - VOMITING [None]
  - WEIGHT DECREASED [None]
